FAERS Safety Report 21575322 (Version 2)
Quarter: 2023Q1

REPORT INFORMATION
  Report Type: Report from Study
  Country: US (occurrence: US)
  Receive Date: 20221110
  Receipt Date: 20230128
  Transmission Date: 20230417
  Serious: Yes (Other)
  Sender: FDA-Public Use
  Company Number: US-ABBVIE-4194275

PATIENT
  Sex: Female

DRUGS (1)
  1. HUMIRA [Suspect]
     Active Substance: ADALIMUMAB
     Indication: Rheumatoid arthritis
     Dosage: CITRATE FREE
     Route: 058
     Dates: start: 20220905

REACTIONS (7)
  - Chemotherapy [Unknown]
  - Attention deficit hyperactivity disorder [Unknown]
  - Injection site pain [Unknown]
  - Weight decreased [Unknown]
  - Amnesia [Unknown]
  - Sinusitis [Recovering/Resolving]
  - Tooth loss [Unknown]
